FAERS Safety Report 8898407 (Version 1)
Quarter: 2012Q4

REPORT INFORMATION
  Report Type: 
  Country: US (occurrence: US)
  Receive Date: 20121109
  Receipt Date: 20121109
  Transmission Date: 20130627
  Serious: Yes (Other)
  Sender: FDA-Public Use
  Company Number: US-009507513-1211USA004000

PATIENT

DRUGS (2)
  1. TEMOZOLOMIDE [Suspect]
     Indication: GLIOBLASTOMA MULTIFORME
     Dosage: 75 mg/m2, qd
     Route: 048
  2. TEMOZOLOMIDE [Suspect]
     Dosage: 150 to 200 mg/m2, qd for 5 days every 28 days
     Route: 048

REACTIONS (1)
  - Neutropenia [Unknown]
